FAERS Safety Report 5727700-5 (Version None)
Quarter: 2008Q2

REPORT INFORMATION
  Report Type: 
  Country: None (occurrence: None)
  Receive Date: 20080505
  Receipt Date: 20080428
  Transmission Date: 20081010
  Serious: Yes (Hospitalization)
  Sender: FDA-Public Use
  Company Number: PHHY2008JP05501

PATIENT
  Age: 14 Year
  Sex: Male

DRUGS (7)
  1. TEGRETOL [Suspect]
     Dosage: 400MG/DAY
     Route: 048
     Dates: start: 20070501
  2. TEGRETOL [Suspect]
     Route: 046
     Dates: start: 20080403, end: 20080403
  3. DEPAKENE [Suspect]
     Dosage: 400MG/DAY
     Route: 048
     Dates: start: 20070501
  4. DEPAKENE [Suspect]
     Route: 046
     Dates: start: 20080403, end: 20080403
  5. INTRAVENOUS FLUIDS [Concomitant]
  6. ANTIBIOTICS [Concomitant]
     Route: 042
     Dates: start: 20080404
  7. NEOPHAGEN-1 [Concomitant]
     Route: 048
     Dates: start: 20080408

REACTIONS (11)
  - ALANINE AMINOTRANSFERASE INCREASED [None]
  - ASPARTATE AMINOTRANSFERASE INCREASED [None]
  - DERMATITIS EXFOLIATIVE [None]
  - DRUG ERUPTION [None]
  - HAEMOGLOBIN DECREASED [None]
  - HEPATIC FUNCTION ABNORMAL [None]
  - LYMPHOCYTE COUNT DECREASED [None]
  - MALAISE [None]
  - NEUTROPHIL COUNT INCREASED [None]
  - PYREXIA [None]
  - WHITE BLOOD CELL COUNT INCREASED [None]
